FAERS Safety Report 22211614 (Version 2)
Quarter: 2023Q2

REPORT INFORMATION
  Report Type: Report from Study
  Country: US (occurrence: US)
  Receive Date: 20230414
  Receipt Date: 20230602
  Transmission Date: 20230722
  Serious: Yes (Hospitalization)
  Sender: FDA-Public Use
  Company Number: US-SAREPTA THERAPEUTICS INC.-SRP2023-003163

PATIENT

DRUGS (19)
  1. CASIMERSEN [Suspect]
     Active Substance: CASIMERSEN
     Indication: Duchenne muscular dystrophy
     Dosage: 1000 MILLIGRAM, WEEKLY
     Dates: start: 20220916, end: 20230308
  2. CASIMERSEN [Suspect]
     Active Substance: CASIMERSEN
     Dosage: 1000 MILLIGRAM, WEEKLY
     Dates: start: 202303
  3. ACCUNEB [Concomitant]
     Active Substance: ALBUTEROL SULFATE
     Indication: Cough
     Dosage: 1.25 MILLIGRAM PER 3 MILLILITRE, PRN Q4H
     Dates: start: 20221110
  4. ACCUNEB [Concomitant]
     Active Substance: ALBUTEROL SULFATE
     Indication: Wheezing
  5. VENTOLIN HFA [Concomitant]
     Active Substance: ALBUTEROL SULFATE
     Indication: Cough
     Dosage: 180 MILLIGRAM, PRN Q4HR
     Dates: start: 20221110
  6. VENTOLIN HFA [Concomitant]
     Active Substance: ALBUTEROL SULFATE
     Indication: Wheezing
     Dosage: 4 PUFFS, PRN Q4HR
  7. PROVENTIL [Concomitant]
     Active Substance: ALBUTEROL
     Indication: Cough
     Dosage: 2.5 MG /3 ML 1 VIAL PRN EVERY 4HOURS
     Dates: start: 20230207
  8. PROVENTIL [Concomitant]
     Active Substance: ALBUTEROL
     Indication: Wheezing
     Dosage: UNK
  9. PULMICORT FLEXHALER [Concomitant]
     Active Substance: BUDESONIDE
     Indication: Cough
     Dosage: 1 PUFF , BID AS NEEDED
     Dates: start: 20221110
  10. PULMICORT FLEXHALER [Concomitant]
     Active Substance: BUDESONIDE
     Indication: Wheezing
     Dosage: 1 PUFF, BID, PRN
     Dates: start: 10230518
  11. PULMICORT FLEXHALER [Concomitant]
     Active Substance: BUDESONIDE
     Indication: Respiratory disorder
  12. PEPCID [Concomitant]
     Active Substance: FAMOTIDINE
     Indication: Steroid therapy
     Dosage: 12MG/1.5ML, 8 MG, BID
     Route: 048
     Dates: start: 20221110
  13. MOTRIN [Concomitant]
     Active Substance: IBUPROFEN
     Indication: Pain
     Dosage: 150 MILLIGRAM, PRN Q6H
     Route: 048
     Dates: start: 20220311
  14. MOTRIN [Concomitant]
     Active Substance: IBUPROFEN
     Indication: Pyrexia
  15. LISINOPRIL [Concomitant]
     Active Substance: LISINOPRIL
     Indication: Prophylaxis
     Dosage: 2.5 MILLIGRAM, 1/2, QD
     Route: 048
     Dates: start: 20220323, end: 20230324
  16. VITAMINS NOS [Concomitant]
     Active Substance: VITAMINS
     Indication: Vitamin supplementation
     Dosage: 1 CHEWABLE TABLET, QD
     Route: 048
  17. ORAPRED [Concomitant]
     Active Substance: PREDNISOLONE SODIUM PHOSPHATE
     Indication: Duchenne muscular dystrophy
     Dosage: 50 ML, BID, EVERY SATURDAY AND SUNDAY
     Route: 048
     Dates: start: 20230318
  18. BUDESONIDE [Concomitant]
     Active Substance: BUDESONIDE
     Indication: Prophylaxis
     Dosage: 1 VIAL, DAILY
     Dates: start: 20221110
  19. PREDNISOLONE [Concomitant]
     Active Substance: PREDNISOLONE
     Indication: Duchenne muscular dystrophy
     Dosage: 50 MILLILITER, BID
     Route: 048
     Dates: start: 20221110

REACTIONS (1)
  - Myocarditis [Recovered/Resolved]

NARRATIVE: CASE EVENT DATE: 20230313
